FAERS Safety Report 9459291 (Version 4)
Quarter: 2014Q2

REPORT INFORMATION
  Report Type: Spontaneous
  Country: US (occurrence: US)
  Receive Date: 20130815
  Receipt Date: 20140516
  Transmission Date: 20141212
  Serious: Yes (Other)
  Sender: FDA-Public Use
  Company Number: US-AMGEN-USASP2013056297

PATIENT
  Age: 63 Year
  Sex: Female

DRUGS (3)
  1. ENBREL [Suspect]
     Indication: RHEUMATOID ARTHRITIS
     Dosage: 50 MG, QWK
     Route: 065
     Dates: start: 20130401, end: 20131230
  2. METHOTREXATE [Concomitant]
     Dosage: UNK
     Dates: start: 201202
  3. PLAQUENIL                          /00072602/ [Concomitant]
     Dosage: UNK
     Dates: start: 201202

REACTIONS (7)
  - Macular hole [Recovered/Resolved]
  - Vision blurred [Not Recovered/Not Resolved]
  - Metamorphopsia [Recovered/Resolved]
  - Dermabrasion [Recovered/Resolved]
  - Toothache [Recovered/Resolved]
  - Cataract [Recovered/Resolved]
  - Sinusitis [Recovered/Resolved]
